FAERS Safety Report 7204058-6 (Version None)
Quarter: 2010Q4

REPORT INFORMATION
  Report Type: 
  Country: None (occurrence: None)
  Receive Date: 20101230
  Receipt Date: 20101220
  Transmission Date: 20110411
  Serious: Yes (Hospitalization)
  Sender: FDA-Public Use
  Company Number: NL-ELI_LILLY_AND_COMPANY-NL201012005201

PATIENT
  Sex: Female

DRUGS (6)
  1. CYMBALTA [Suspect]
     Dosage: 30 MG, DAILY (1/D)
     Dates: start: 20101022, end: 20101102
  2. NITRAZEPAM [Concomitant]
     Dosage: 5 MG, UNK
     Dates: start: 20100602
  3. VESICARE [Concomitant]
     Dosage: 5 MG, DAILY (1/D)
     Dates: start: 20100525
  4. DIMETHYL SULFOXIDE [Concomitant]
     Dosage: 1 D/F, DAILY (1/D)
     Dates: start: 20100721
  5. CALCIUM W/VITAMIN D NOS [Concomitant]
     Dosage: 1 D/F, DAILY (1/D)
     Dates: start: 20100311
  6. PSYLLIUM [Concomitant]
     Dosage: UNK, DAILY (1/D)
     Dates: start: 20051114

REACTIONS (18)
  - CHEST PAIN [None]
  - CHILLS [None]
  - DECREASED APPETITE [None]
  - DIZZINESS [None]
  - DYSGEUSIA [None]
  - DYSKINESIA [None]
  - ERUCTATION [None]
  - FEELING COLD [None]
  - MYDRIASIS [None]
  - PAIN IN JAW [None]
  - POLLAKIURIA [None]
  - SALIVARY HYPERSECRETION [None]
  - SALT CRAVING [None]
  - SKIN ODOUR ABNORMAL [None]
  - SOMNOLENCE [None]
  - URINE FLOW DECREASED [None]
  - WEIGHT DECREASED [None]
  - YAWNING [None]
